FAERS Safety Report 4452409-8 (Version None)
Quarter: 2004Q3

REPORT INFORMATION
  Report Type: 
  Country: None (occurrence: None)
  Receive Date: 20040915
  Receipt Date: 20040903
  Transmission Date: 20050211
  Serious: Yes (Hospitalization)
  Sender: FDA-Public Use
  Company Number: 208868

PATIENT
  Age: 48 Year
  Sex: Male

DRUGS (1)
  1. ACTILYSE (ALTEPLASE) PWDR + SOLVENT, INFUSION SOLN [Suspect]
     Indication: CEREBRAL ISCHAEMIA
     Dosage: 35 MG, SINGLE, INTRAVENOUS
     Route: 042
     Dates: start: 20040724, end: 20040724

REACTIONS (2)
  - AKATHISIA [None]
  - HEADACHE [None]
